FAERS Safety Report 9238079 (Version 3)
Quarter: 2013Q3

REPORT INFORMATION
  Report Type: Report from Study
  Country: ZA (occurrence: ZA)
  Receive Date: 20130418
  Receipt Date: 20130805
  Transmission Date: 20140515
  Serious: Yes (Other)
  Sender: FDA-Public Use
  Company Number: PHHY2013ZA035631

PATIENT
  Age: 61 Year
  Sex: Female
  Weight: 105 kg

DRUGS (4)
  1. CO-DIOVAN [Suspect]
     Indication: HYPERTENSION
     Dosage: 1 DF, DAILY
  2. WARFARIN [Concomitant]
     Indication: THROMBOSIS
  3. SERLIFE [Concomitant]
  4. SERTRALINE HYDROCHLORIDE [Concomitant]
     Dosage: UNK UKN, UNK

REACTIONS (5)
  - Type 2 diabetes mellitus [Unknown]
  - Glycosylated haemoglobin increased [Unknown]
  - Psoriasis [Unknown]
  - Arthritis [Unknown]
  - Arthralgia [Unknown]
